FAERS Safety Report 12280304 (Version 4)
Quarter: 2016Q3

REPORT INFORMATION
  Report Type: Spontaneous
  Country: US (occurrence: US)
  Receive Date: 20160419
  Receipt Date: 20160708
  Transmission Date: 20161109
  Serious: Yes (Other)
  Sender: FDA-Public Use
  Company Number: US-009507513-1604USA000059

PATIENT
  Age: 22 Year
  Sex: Female
  Weight: 136.5 kg

DRUGS (1)
  1. NEXPLANON [Suspect]
     Active Substance: ETONOGESTREL
     Indication: CONTRACEPTION
     Dosage: A ROD, LEFT ARM
     Route: 059
     Dates: start: 20140310, end: 2016

REACTIONS (8)
  - Menstruation irregular [Unknown]
  - Migration of implanted drug [Recovered/Resolved]
  - Muscle spasms [Unknown]
  - Vaginal haemorrhage [Not Recovered/Not Resolved]
  - Device difficult to use [Recovered/Resolved]
  - Device deployment issue [Recovered/Resolved]
  - Complication associated with device [Recovered/Resolved]
  - Weight increased [Unknown]

NARRATIVE: CASE EVENT DATE: 20140310
